FAERS Safety Report 10370163 (Version 1)
Quarter: 2014Q3

REPORT INFORMATION
  Report Type: Spontaneous
  Country: US (occurrence: None)
  Receive Date: 20140806
  Receipt Date: 20140806
  Transmission Date: 20150326
  Serious: Yes (Hospitalization)
  Sender: FDA-Public Use
  Company Number: None

PATIENT
  Age: 53 Year
  Sex: Female
  Weight: 79.45 kg

DRUGS (3)
  1. TAXOL [Suspect]
     Active Substance: PACLITAXEL
     Dosage: TOTAL DOSE ADMINISTERED
  2. CARBOPLATIN. [Suspect]
     Active Substance: CARBOPLATIN
     Dosage: TOTAL DOSE ADMINISTERED
  3. CISPLATIN. [Suspect]
     Active Substance: CISPLATIN
     Dosage: TOTAL DOSE ADMINISTERED

REACTIONS (2)
  - Loss of consciousness [None]
  - Asthenia [None]

NARRATIVE: CASE EVENT DATE: 20140802
